FAERS Safety Report 6590662-5 (Version None)
Quarter: 2010Q1

REPORT INFORMATION
  Report Type: 
  Country: None (occurrence: None)
  Receive Date: 20100219
  Receipt Date: 20100210
  Transmission Date: 20100710
  Serious: Yes (Other)
  Sender: FDA-Public Use
  Company Number: B0527739A

PATIENT
  Age: 22 Year
  Sex: Female

DRUGS (9)
  1. TRIZIVIR [Suspect]
     Indication: ANTIVIRAL PROPHYLAXIS
     Dosage: 1TAB TWICE PER DAY
     Dates: start: 20080410, end: 20080607
  2. METHYLDOPA [Concomitant]
  3. HYDRALAZINE [Concomitant]
     Route: 042
  4. MAGNESIUM SULFATE [Concomitant]
     Route: 030
  5. NIFEDIPINE [Concomitant]
  6. CEFOTAXIME [Concomitant]
  7. METRONIDAZOLE [Concomitant]
  8. FERROUS SULFATE TAB [Concomitant]
  9. FOLATE [Concomitant]

REACTIONS (7)
  - DRUG EXPOSURE DURING PREGNANCY [None]
  - HYPERTENSION [None]
  - INTRA-UTERINE DEATH [None]
  - OEDEMA PERIPHERAL [None]
  - PRE-ECLAMPSIA [None]
  - PROTEINURIA [None]
  - SWELLING FACE [None]
